FAERS Safety Report 9788494 (Version 4)
Quarter: 2014Q1

REPORT INFORMATION
  Report Type: Spontaneous
  Country: US (occurrence: None)
  Receive Date: 20131227
  Receipt Date: 20140210
  Transmission Date: 20141002
  Serious: Yes (Life-Threatening)
  Sender: FDA-Public Use
  Company Number: FK201305538

PATIENT
  Age: 56 Year
  Sex: Female
  Weight: 62 kg

DRUGS (8)
  1. PROPOFOL [Suspect]
     Indication: INDUCTION OF ANAESTHESIA
     Dosage: INTRAVENOUS PUSH IVP
     Route: 042
     Dates: start: 20131219, end: 20131219
  2. ATROPINE [Suspect]
     Indication: BRADYCARDIA
     Dosage: 0.8 MG, TIMES 2 DOSES AT 1340 AND 1344, UNKNOWN
     Dates: start: 20131219, end: 20131219
  3. TRANEXAMIC ACID (TRANEXAMIC ACID) [Suspect]
     Indication: PRODUCT USED FOR UNKNOWN INDICATION
     Dosage: 1 GM, FOR PATIENTS 50-100 KG, INTRAVENOUS (NOT OTHERWISE SPECIFIED)?
     Route: 042
     Dates: start: 20131219, end: 20131219
  4. MORPHINE [Suspect]
     Indication: PRODUCT USED FOR UNKNOWN INDICATION
     Dosage: 8 MG, TO BE ADDED TO PERI-ARTICULAR SOLUTION, INTRA CORPUS CAVERNOSUM?
     Dates: start: 20131219, end: 20131219
  5. ANCEF (CEFAZOLIN SODIUM) [Concomitant]
  6. FENTANYL (FENTANYL) [Concomitant]
  7. LIDOCAINE (LIDOCAINE) [Concomitant]
  8. VECURONIUM (VECURONIUM) [Concomitant]

REACTIONS (2)
  - Bradycardia [None]
  - Cardiac arrest [None]
